FAERS Safety Report 15279907 (Version 1)
Quarter: 2018Q4

REPORT INFORMATION
  Report Type: Spontaneous
  Country: US (occurrence: US)
  Receive Date: 20180815
  Receipt Date: 20180815
  Transmission Date: 20190204
  Serious: Yes (Death, Hospitalization, Other)
  Sender: FDA-Public Use
  Company Number: US-ENDO PHARMACEUTICALS INC-2018-040534

PATIENT
  Age: 28 Year
  Sex: Male

DRUGS (4)
  1. PERCOCET [Suspect]
     Active Substance: ACETAMINOPHEN\OXYCODONE HYDROCHLORIDE
     Indication: PAIN
     Dosage: UNK UNKNOWN, UNKNOWN
     Route: 065
     Dates: start: 2006, end: 201108
  2. OXYCONTIN [Suspect]
     Active Substance: OXYCODONE HYDROCHLORIDE
     Indication: PAIN
     Dosage: UNK UNKNOWN, UNKNOWN
     Route: 065
     Dates: start: 2006, end: 201108
  3. HEROIN [Suspect]
     Active Substance: DIAMORPHINE
     Indication: PAIN MANAGEMENT
     Dosage: 6/10S UNKNOWN, DAILY
     Route: 065
  4. FENTANYL. [Suspect]
     Active Substance: FENTANYL
     Indication: PAIN
     Dosage: UNK UNKNOWN, UNKNOWN
     Route: 065
     Dates: end: 201108

REACTIONS (4)
  - Drug abuse [Unknown]
  - Overdose [Unknown]
  - Withdrawal syndrome [Unknown]
  - Substance use disorder [Fatal]

NARRATIVE: CASE EVENT DATE: 2008
